FAERS Safety Report 25773708 (Version 2)
Quarter: 2025Q3

REPORT INFORMATION
  Report Type: Spontaneous
  Country: US (occurrence: US)
  Receive Date: 20250908
  Receipt Date: 20250911
  Transmission Date: 20251020
  Serious: Yes (Hospitalization)
  Sender: PFIZER
  Company Number: US-PFIZER INC-202500176506

PATIENT
  Age: 65 Year
  Sex: Female

DRUGS (12)
  1. IBRANCE [Suspect]
     Active Substance: PALBOCICLIB
     Indication: Breast cancer
     Dates: start: 202310, end: 20250902
  2. HYDROMORPHONE [Concomitant]
     Active Substance: HYDROMORPHONE
  3. NICOTINE [Concomitant]
     Active Substance: NICOTINE
     Route: 062
  4. FENTANYL [Concomitant]
     Active Substance: FENTANYL
     Route: 062
  5. MONTELUKAST [Concomitant]
     Active Substance: MONTELUKAST
  6. LOSARTAN [Concomitant]
     Active Substance: LOSARTAN
  7. ATORVASTATIN [Concomitant]
     Active Substance: ATORVASTATIN
  8. DIAZEPAM [Concomitant]
     Active Substance: DIAZEPAM
  9. FUROSEMIDE [Concomitant]
     Active Substance: FUROSEMIDE
  10. SPIRIVA RESPIMAT [Concomitant]
     Active Substance: TIOTROPIUM BROMIDE
  11. ALBUTEROL SULFATE [Concomitant]
     Active Substance: ALBUTEROL SULFATE
  12. ZOLPIDEM [Concomitant]
     Active Substance: ZOLPIDEM TARTRATE

REACTIONS (1)
  - Dyspnoea [Unknown]
